FAERS Safety Report 25041226 (Version 2)
Quarter: 2025Q1

REPORT INFORMATION
  Report Type: Spontaneous
  Country: DE (occurrence: DE)
  Receive Date: 20250305
  Receipt Date: 20250314
  Transmission Date: 20250409
  Serious: Yes (Hospitalization)
  Sender: AUROBINDO
  Company Number: DE-CADRBFARM-2025334310

PATIENT
  Age: 58 Year
  Sex: Male
  Weight: 86 kg

DRUGS (4)
  1. MIRTAZAPINE [Suspect]
     Active Substance: MIRTAZAPINE
     Indication: Middle insomnia
     Route: 048
     Dates: start: 202411, end: 20250112
  2. MIRTAZAPINE [Suspect]
     Active Substance: MIRTAZAPINE
     Indication: Hypertonia
  3. MIRTAZAPINE [Suspect]
     Active Substance: MIRTAZAPINE
     Indication: Fatigue
  4. MIRTAZAPINE [Suspect]
     Active Substance: MIRTAZAPINE
     Indication: Depression

REACTIONS (13)
  - Muscle twitching [Not Recovered/Not Resolved]
  - Cold sweat [Not Recovered/Not Resolved]
  - Tremor [Not Recovered/Not Resolved]
  - Hyperhidrosis [Not Recovered/Not Resolved]
  - Sensory overload [Not Recovered/Not Resolved]
  - Disturbance in attention [Not Recovered/Not Resolved]
  - Restlessness [Not Recovered/Not Resolved]
  - Coordination abnormal [Unknown]
  - Muscle contractions involuntary [Unknown]
  - Memory impairment [Recovered/Resolved]
  - Electromyogram abnormal [Recovering/Resolving]
  - Myalgia [Not Recovered/Not Resolved]
  - Antidepressant discontinuation syndrome [Not Recovered/Not Resolved]

NARRATIVE: CASE EVENT DATE: 20241209
